FAERS Safety Report 4312815-9 (Version None)
Quarter: 2004Q1

REPORT INFORMATION
  Report Type: 
  Country: None (occurrence: None)
  Receive Date: 20040304
  Receipt Date: 20040219
  Transmission Date: 20041129
  Serious: Yes (Hospitalization)
  Sender: FDA-Public Use
  Company Number: 2003-06086

PATIENT
  Age: 57 Year
  Sex: Female
  Weight: 80 kg

DRUGS (8)
  1. TENOFOVIR DF [Suspect]
     Indication: HIV INFECTION
     Dosage: 300 MG QD; PO
     Route: 048
     Dates: start: 20030618, end: 20030814
  2. EPIVIR [Suspect]
     Indication: HIV INFECTION
     Dosage: NI
     Dates: start: 20030601, end: 20030814
  3. ZIAGEN [Suspect]
     Indication: HIV INFECTION
     Dosage: NI
     Dates: start: 20030601, end: 20030814
  4. DAONIL [Suspect]
     Indication: DIABETES MELLITUS
     Dosage: 5 MG TID; PO
     Route: 048
     Dates: start: 20030618, end: 20030814
  5. LIPANTHYL ^FOURNIER^ [Suspect]
     Indication: LIPID METABOLISM DISORDER
     Dosage: 100 MG QD; PO
     Route: 048
     Dates: end: 20030814
  6. BACTRIM DS [Suspect]
     Indication: INFECTION PROPHYLAXIS
     Dosage: NI
     Dates: end: 20030814
  7. GLUCOPHAGE ^ARON^ [Concomitant]
  8. HYPERIUM [Concomitant]

REACTIONS (3)
  - HYPERGLYCAEMIA [None]
  - RENAL FAILURE ACUTE [None]
  - TUBULOINTERSTITIAL NEPHRITIS [None]
